FAERS Safety Report 26172000 (Version 1)
Quarter: 2025Q4

REPORT INFORMATION
  Report Type: Spontaneous
  Country: CA (occurrence: CA)
  Receive Date: 20251217
  Receipt Date: 20251217
  Transmission Date: 20260117
  Serious: Yes (Other)
  Sender: CELLTRION
  Company Number: CA-CELLTRION INC.-2022CA022679

PATIENT

DRUGS (3)
  1. TRUXIMA [Suspect]
     Active Substance: RITUXIMAB-ABBS
     Indication: Vasculitis
     Dosage: 500 MG DAY 1AND 15
     Route: 042
     Dates: start: 20221202
  2. TRUXIMA [Suspect]
     Active Substance: RITUXIMAB-ABBS
     Dosage: 500 MG Q 6 MONTHS/500MG/EVERY 6  MONTHS
     Route: 042
     Dates: start: 20221202
  3. TRUXIMA [Suspect]
     Active Substance: RITUXIMAB-ABBS
     Dosage: 500 MG Q 6 MONTHS/500MG/EVERY 6  MONTHS
     Route: 042
     Dates: start: 20250718

REACTIONS (3)
  - Ill-defined disorder [Unknown]
  - Hypertension [Unknown]
  - Product prescribing issue [Unknown]
